FAERS Safety Report 15241041 (Version 1)
Quarter: 2018Q3

REPORT INFORMATION
  Report Type: Spontaneous
  Country: US (occurrence: US)
  Receive Date: 20180711
  Receipt Date: 20180711
  Transmission Date: 20181010
  Serious: Yes (Hospitalization)
  Sender: FDA-Public Use
  Company Number: None

PATIENT
  Age: 5 Year
  Sex: Female

DRUGS (2)
  1. TOBRAMYCIN. [Suspect]
     Active Substance: TOBRAMYCIN
     Indication: CHRONIC RESPIRATORY FAILURE
     Dosage: ?          OTHER ROUTE:NEBULIZER?
     Dates: start: 20160212
  2. PULMOZYME [Suspect]
     Active Substance: DORNASE ALFA
     Indication: CHRONIC RESPIRATORY FAILURE
     Dosage: ?          OTHER ROUTE:NEBULIZER?
     Dates: start: 20161220

REACTIONS (2)
  - Lung disorder [None]
  - Viral infection [None]

NARRATIVE: CASE EVENT DATE: 20180629
